FAERS Safety Report 25444992 (Version 1)
Quarter: 2025Q2

REPORT INFORMATION
  Report Type: Spontaneous
  Country: AT (occurrence: AT)
  Receive Date: 20250617
  Receipt Date: 20250617
  Transmission Date: 20250716
  Serious: Yes (Death)
  Sender: DAIICHI
  Company Number: AT-DAIICHI SANKYO, INC.-DS-2025-145775-ATAA

PATIENT
  Sex: Male
  Weight: 160 kg

DRUGS (2)
  1. QUIZARTINIB [Suspect]
     Active Substance: QUIZARTINIB
     Indication: Acute myeloid leukaemia
     Route: 048
     Dates: start: 20240920
  2. QUIZARTINIB [Suspect]
     Active Substance: QUIZARTINIB
     Indication: Prophylaxis
     Route: 048
     Dates: start: 20250317, end: 20250602

REACTIONS (1)
  - Acute myeloid leukaemia recurrent [Fatal]

NARRATIVE: CASE EVENT DATE: 20250528
